FAERS Safety Report 7604022-9 (Version None)
Quarter: 2011Q3

REPORT INFORMATION
  Report Type: 
  Country: None (occurrence: None)
  Receive Date: 20110712
  Receipt Date: 20110707
  Transmission Date: 20111222
  Serious: Yes (Death)
  Sender: FDA-Public Use
  Company Number: DZ-ROCHE-788252

PATIENT
  Sex: Female

DRUGS (4)
  1. HERCEPTIN [Suspect]
     Indication: BREAST CANCER
     Dosage: FREQUENCY: PER CURE
     Route: 042
     Dates: end: 20100523
  2. ZOMETA [Suspect]
     Indication: BREAST CANCER
     Dosage: FREQUENCY: PER CURE
     Route: 065
     Dates: end: 20100523
  3. ZOMETA [Suspect]
     Dosage: FREQUENCY: PER CURE
     Route: 065
     Dates: start: 20100916, end: 20101017
  4. HERCEPTIN [Suspect]
     Dosage: FREQUENCY: PER CURE
     Route: 042
     Dates: start: 20100916, end: 20101017

REACTIONS (1)
  - DISEASE PROGRESSION [None]
